FAERS Safety Report 25544192 (Version 1)
Quarter: 2025Q3

REPORT INFORMATION
  Report Type: Spontaneous
  Country: GB (occurrence: GB)
  Receive Date: 20250711
  Receipt Date: 20250711
  Transmission Date: 20251020
  Serious: Yes (Other)
  Sender: PFIZER
  Company Number: GB-MHRA-TPP11414043C18525499YC1752053397009

PATIENT
  Age: 31 Year
  Sex: Female
  Weight: 110 kg

DRUGS (4)
  1. MEDROXYPROGESTERONE\MEDROXYPROGESTERONE ACETATE [Suspect]
     Active Substance: MEDROXYPROGESTERONE\MEDROXYPROGESTERONE ACETATE
     Dates: start: 20250416
  2. DEPO-PROVERA [Concomitant]
     Active Substance: MEDROXYPROGESTERONE ACETATE
     Dates: start: 20250627
  3. LAMOTRIGINE [Concomitant]
     Active Substance: LAMOTRIGINE
     Dates: start: 20230502
  4. PARAFFIN [Concomitant]
     Active Substance: PARAFFIN
     Dates: start: 20230918

REACTIONS (2)
  - Lipoatrophy [Recovering/Resolving]
  - Skin texture abnormal [Unknown]
